FAERS Safety Report 18265835 (Version 1)
Quarter: 2020Q3

REPORT INFORMATION
  Report Type: Spontaneous
  Country: US (occurrence: US)
  Receive Date: 20200915
  Receipt Date: 20200915
  Transmission Date: 20201103
  Serious: No
  Sender: FDA-Public Use
  Company Number: US-SA-2020SA249225

PATIENT

DRUGS (2)
  1. DUPIXENT [Suspect]
     Active Substance: DUPILUMAB
     Indication: TRAUMATIC LUNG INJURY
     Dosage: UNK, 1X
     Route: 058
     Dates: start: 202006, end: 202006
  2. DUPIXENT [Suspect]
     Active Substance: DUPILUMAB
     Indication: RESPIRATION ABNORMAL
     Dosage: 300 MG, QOW
     Dates: start: 2020

REACTIONS (1)
  - Off label use [Unknown]

NARRATIVE: CASE EVENT DATE: 202006
